FAERS Safety Report 6241433-0 (Version None)
Quarter: 2009Q2

REPORT INFORMATION
  Report Type: 
  Country: None (occurrence: None)
  Receive Date: 20090619
  Receipt Date: 20090619
  Transmission Date: 20091009
  Serious: Yes (Other)
  Sender: FDA-Public Use
  Company Number: None

PATIENT
  Age: 61 Year
  Sex: Female

DRUGS (1)
  1. ZICAM NASAL SPRAY [Suspect]
     Indication: UPPER RESPIRATORY TRACT INFECTION
     Dates: start: 20090529, end: 20090616

REACTIONS (1)
  - ANOSMIA [None]
